FAERS Safety Report 9153305 (Version 1)
Quarter: 2013Q1

REPORT INFORMATION
  Report Type: Spontaneous
  Country: CO (occurrence: CO)
  Receive Date: 20130311
  Receipt Date: 20130311
  Transmission Date: 20140127
  Serious: Yes (Other)
  Sender: FDA-Public Use
  Company Number: CO-AMGEN-COLSP2013015579

PATIENT
  Age: 70 Year
  Sex: Male

DRUGS (15)
  1. ENBREL [Suspect]
     Indication: RHEUMATOID ARTHRITIS
     Dosage: 50 MG, WEEKLY
     Route: 058
     Dates: start: 2009
  2. METFORMIN [Concomitant]
     Indication: DIABETES MELLITUS
     Dosage: 850 MG, 1X/DAY
     Route: 048
     Dates: start: 2001
  3. LEVOTHYROXINE [Concomitant]
     Indication: HYPOTHYROIDISM
     Dosage: 50 MG, 1X/DAY
     Route: 048
     Dates: start: 2005
  4. BRIMONIDINE                        /01341102/ [Concomitant]
     Indication: GLAUCOMA
     Dosage: 2 MG, BID
     Route: 047
     Dates: start: 2005
  5. DORZOLAMIDE/TIMOLOL                /01419801/ [Concomitant]
     Indication: GLAUCOMA
     Dosage: 20MG/50MG BID
     Route: 047
     Dates: start: 2005
  6. CARVEDIOL [Concomitant]
     Indication: HYPERTENSION
     Dosage: 6.25 MG, 2X/DAY
     Route: 048
     Dates: start: 2008
  7. GLIBENCLAMIDE [Concomitant]
     Indication: DIABETES MELLITUS
     Dosage: 5 MG, UNK
     Dates: start: 2009
  8. FOLIC ACID [Concomitant]
     Indication: RHEUMATOID ARTHRITIS
     Dosage: 1 MG, UNK
     Dates: start: 201206
  9. METHOTREXATE [Concomitant]
     Dosage: 2.5 MG, UNK
     Dates: start: 201206
  10. ESOMEPRAZOLE [Concomitant]
     Indication: PROPHYLAXIS AGAINST GASTROINTESTINAL ULCER
     Dosage: 20 MG, UNK
     Dates: start: 201210
  11. PILOCARPINE [Concomitant]
     Dosage: 5 MG, UNK
  12. LORATADINE [Concomitant]
     Indication: DRY MOUTH
     Dosage: 10 MG, UNK
  13. LORATADINE [Concomitant]
     Indication: DRY EYE
  14. LORATADINE [Concomitant]
     Indication: NASAL DRYNESS
  15. LORATADINE [Concomitant]
     Indication: DRY SKIN

REACTIONS (6)
  - Transient ischaemic attack [Recovered/Resolved]
  - Cerebrovascular accident [Recovered/Resolved]
  - Renal disorder [Recovered/Resolved]
  - Tooth loss [Unknown]
  - Insomnia [Unknown]
  - Speech disorder [Unknown]
